FAERS Safety Report 4411510-5 (Version None)
Quarter: 2004Q2

REPORT INFORMATION
  Report Type: 
  Country: None (occurrence: None)
  Receive Date: 20040630
  Receipt Date: 20040406
  Transmission Date: 20050107
  Serious: No
  Sender: FDA-Public Use
  Company Number: 04P-163-0256217-00

PATIENT
  Age: 37 Year
  Sex: Female
  Weight: 108.4097 kg

DRUGS (7)
  1. HUMIRA [Suspect]
     Indication: RHEUMATOID ARTHRITIS
     Dosage: 40 MG, 1 IN 2 WK, SUBCUTANEOUS
     Route: 058
     Dates: start: 20040101, end: 20040317
  2. HYDROXYCHLOROQUINE PHOSPHATE [Concomitant]
  3. VALSARTAN [Concomitant]
  4. PREDNISONE TAB [Concomitant]
  5. HYDROCHLOROTHIAZIDE [Concomitant]
  6. ESOMEPRAZOLE [Concomitant]
  7. VICODIN [Concomitant]

REACTIONS (10)
  - APHONIA [None]
  - COUGH [None]
  - DEAFNESS [None]
  - EAR INFECTION [None]
  - FURUNCLE [None]
  - MUSCLE SPASMS [None]
  - NASOPHARYNGITIS [None]
  - SINUSITIS [None]
  - WEIGHT [None]
  - WEIGHT INCREASED [None]
